FAERS Safety Report 12955171 (Version 1)
Quarter: 2016Q4

REPORT INFORMATION
  Report Type: Spontaneous
  Country: US (occurrence: US)
  Receive Date: 20161118
  Receipt Date: 20161118
  Transmission Date: 20170207
  Serious: No
  Sender: FDA-Public Use
  Company Number: US-PERRIGO-15US011651

PATIENT
  Age: 8 Year
  Sex: Male
  Weight: 33.56 kg

DRUGS (1)
  1. POLYETHYLENE GLYCOL 3350. [Suspect]
     Active Substance: POLYETHYLENE GLYCOL 3350
     Indication: ACCIDENTAL EXPOSURE TO PRODUCT BY CHILD
     Dosage: APPROXIMATELY 17 G, SINGLE
     Route: 048
     Dates: start: 20151104, end: 20151104

REACTIONS (1)
  - Accidental exposure to product by child [Recovered/Resolved]

NARRATIVE: CASE EVENT DATE: 20151104
